FAERS Safety Report 17194359 (Version 1)
Quarter: 2019Q4

REPORT INFORMATION
  Report Type: Spontaneous
  Country: FR (occurrence: FR)
  Receive Date: 20191224
  Receipt Date: 20191224
  Transmission Date: 20200122
  Serious: Yes (Hospitalization)
  Sender: FDA-Public Use
  Company Number: FR-TEVA-2019-FR-1156151

PATIENT
  Age: 55 Year
  Sex: Female

DRUGS (5)
  1. DEPAKINE [Suspect]
     Active Substance: VALPROATE SODIUM
     Indication: AFFECTIVE DISORDER
     Dosage: UNKNOWN
     Route: 048
     Dates: start: 20191022, end: 20191027
  2. DIOSMINE [Concomitant]
     Active Substance: DIOSMIN
  3. LAMOTRIGINE. [Suspect]
     Active Substance: LAMOTRIGINE
     Indication: AFFECTIVE DISORDER
     Dosage: 25 MG
     Route: 048
     Dates: start: 20191022, end: 20191027
  4. DEPAKOTE [Suspect]
     Active Substance: DIVALPROEX SODIUM
     Indication: AFFECTIVE DISORDER
     Dosage: UNKNOWN
     Route: 048
     Dates: start: 20191022, end: 20191022
  5. METEOSPASMYL, CAPSULE MOLLE [Concomitant]

REACTIONS (4)
  - Toxic skin eruption [Recovering/Resolving]
  - Hepatitis [Recovering/Resolving]
  - Lymphopenia [Recovered/Resolved]
  - Hypersensitivity [Recovering/Resolving]

NARRATIVE: CASE EVENT DATE: 20191027
